FAERS Safety Report 10013852 (Version 2)
Quarter: 2014Q1

REPORT INFORMATION
  Report Type: Spontaneous
  Country: US (occurrence: US)
  Receive Date: 20140316
  Receipt Date: 20140316
  Transmission Date: 20141002
  Serious: Yes (Other)
  Sender: FDA-Public Use
  Company Number: US-GE HEALTHCARE MEDICAL DIAGNOSTICS-OSCN-PR-0905S-0263

PATIENT
  Age: 53 Year
  Sex: Female

DRUGS (3)
  1. OMNISCAN [Suspect]
     Indication: PRODUCT USED FOR UNKNOWN INDICATION
     Route: 042
     Dates: start: 20000725, end: 20000725
  2. OMNISCAN [Suspect]
     Route: 042
     Dates: start: 20020408, end: 20020408
  3. OMNISCAN [Suspect]
     Route: 042
     Dates: start: 20020510, end: 20020510

REACTIONS (1)
  - Nephrogenic systemic fibrosis [Not Recovered/Not Resolved]
